FAERS Safety Report 20843103 (Version 1)
Quarter: 2022Q2

REPORT INFORMATION
  Report Type: Spontaneous
  Country: US (occurrence: None)
  Receive Date: 20220517
  Receipt Date: 20220517
  Transmission Date: 20220721
  Serious: Yes (Other)
  Sender: FDA-Public Use
  Company Number: None

PATIENT
  Age: 55 Year
  Sex: Male
  Weight: 120.2 kg

DRUGS (1)
  1. LOTREL [Suspect]
     Active Substance: AMLODIPINE BESYLATE\BENAZEPRIL HYDROCHLORIDE
     Indication: Hypertension
     Dosage: OTHER QUANTITY : 5-20 MG;?FREQUENCY : DAILY;?
     Route: 048

REACTIONS (3)
  - Swelling [None]
  - Drug intolerance [None]
  - Malaise [None]
